FAERS Safety Report 25913572 (Version 1)
Quarter: 2025Q4

REPORT INFORMATION
  Report Type: Spontaneous
  Country: US (occurrence: US)
  Receive Date: 20251013
  Receipt Date: 20251013
  Transmission Date: 20260118
  Serious: No
  Sender: ROCHE
  Company Number: US-ROCHE-10000408977

PATIENT
  Sex: Female

DRUGS (1)
  1. ALECENSA [Suspect]
     Active Substance: ALECTINIB HYDROCHLORIDE
     Indication: Lung neoplasm malignant
     Route: 048
     Dates: start: 202403

REACTIONS (6)
  - Blood creatinine increased [Unknown]
  - Influenza [Unknown]
  - Neck pain [Unknown]
  - Abdominal pain upper [Unknown]
  - Pruritus [Unknown]
  - Fatigue [Unknown]
